FAERS Safety Report 16587152 (Version 1)
Quarter: 2019Q3

REPORT INFORMATION
  Report Type: Spontaneous
  Country: US (occurrence: US)
  Receive Date: 20190717
  Receipt Date: 20190717
  Transmission Date: 20191004
  Serious: No
  Sender: FDA-Public Use
  Company Number: US-SA-2019SA191693

PATIENT
  Age: 80 Year
  Sex: Female

DRUGS (1)
  1. AUBAGIO [Suspect]
     Active Substance: TERIFLUNOMIDE
     Indication: MULTIPLE SCLEROSIS
     Dosage: 14 MG, QD
     Route: 048
     Dates: start: 201905

REACTIONS (7)
  - Pain [Unknown]
  - Condition aggravated [Unknown]
  - Diarrhoea [Unknown]
  - Skin exfoliation [Unknown]
  - Feeling hot [Unknown]
  - Oedema [Unknown]
  - Erythema [Unknown]
